FAERS Safety Report 5071692-1 (Version None)
Quarter: 2006Q3

REPORT INFORMATION
  Report Type: 
  Country: None (occurrence: None)
  Receive Date: 20060804
  Receipt Date: 20040329
  Transmission Date: 20061208
  Serious: Yes (Other)
  Sender: FDA-Public Use
  Company Number: PHEH2004US03650

PATIENT
  Age: 51 Year
  Sex: Female

DRUGS (13)
  1. FEMARA [Concomitant]
     Dosage: 2.5 MG, QD
  2. CELEBREX [Concomitant]
     Dosage: 200 MG, QD
  3. AREDIA [Suspect]
     Indication: BREAST CANCER
     Dosage: 90 MG MONTHLY
     Route: 042
     Dates: start: 20031201, end: 20040501
  4. CALCIUM CARBONATE [Concomitant]
  5. VITAMINS [Concomitant]
  6. OXYCONTIN [Concomitant]
  7. OXYCODONE HCL [Concomitant]
  8. ZOFRAN [Concomitant]
  9. COMPAZINE [Concomitant]
  10. MIRALAX [Concomitant]
  11. KLOR-CON [Concomitant]
  12. BUMETANIDE [Concomitant]
  13. ZOMETA [Suspect]
     Indication: BREAST CANCER
     Dosage: 4 MG MONTHLY
     Route: 042
     Dates: start: 20030501, end: 20031101

REACTIONS (5)
  - BONE DISORDER [None]
  - IMPAIRED HEALING [None]
  - OSTEONECROSIS [None]
  - PAIN IN JAW [None]
  - TOOTH EXTRACTION [None]
